FAERS Safety Report 9874577 (Version 2)
Quarter: 2014Q1

REPORT INFORMATION
  Report Type: Spontaneous
  Country: CA (occurrence: CA)
  Receive Date: 20140206
  Receipt Date: 20140312
  Transmission Date: 20141002
  Serious: Yes (Hospitalization, Other)
  Sender: FDA-Public Use
  Company Number: CA-ROCHE-1344897

PATIENT
  Sex: Female

DRUGS (2)
  1. XOLAIR [Suspect]
     Indication: ASTHMA
     Route: 058
     Dates: start: 20070618
  2. XOLAIR [Suspect]
     Route: 058
     Dates: start: 20090507

REACTIONS (3)
  - Lung disorder [Unknown]
  - Oesophageal disorder [Unknown]
  - Malaise [Unknown]
